FAERS Safety Report 8352264-X (Version None)
Quarter: 2012Q2

REPORT INFORMATION
  Report Type: 
  Country: None (occurrence: None)
  Receive Date: 20120511
  Receipt Date: 20120503
  Transmission Date: 20120825
  Serious: Yes (Hospitalization)
  Sender: FDA-Public Use
  Company Number: US-BAYER-2012-044446

PATIENT
  Age: 24 Year
  Sex: Female
  Weight: 57.143 kg

DRUGS (2)
  1. YAZ [Suspect]
     Indication: CONTRACEPTION
     Dosage: UNK
     Dates: start: 20090301, end: 20090622
  2. VICODIN [Concomitant]

REACTIONS (4)
  - PULMONARY EMBOLISM [None]
  - CHEST PAIN [None]
  - ANXIETY [None]
  - PLEURITIC PAIN [None]
